FAERS Safety Report 18520330 (Version 1)
Quarter: 2020Q4

REPORT INFORMATION
  Report Type: Spontaneous
  Country: CA (occurrence: CA)
  Receive Date: 20201119
  Receipt Date: 20201119
  Transmission Date: 20210114
  Serious: Yes (Hospitalization, Other)
  Sender: FDA-Public Use
  Company Number: CA-JNJFOC-20201120200

PATIENT
  Age: 84 Year
  Sex: Male

DRUGS (3)
  1. ACETAMINOPHEN. [Concomitant]
     Active Substance: ACETAMINOPHEN
     Indication: HEADACHE
     Route: 065
  2. METHYLPREDNISOLONE. [Suspect]
     Active Substance: METHYLPREDNISOLONE
     Indication: PRODUCT USED FOR UNKNOWN INDICATION
     Route: 065
  3. DARZALEX [Suspect]
     Active Substance: DARATUMUMAB
     Indication: PLASMA CELL MYELOMA
     Route: 042

REACTIONS (7)
  - Headache [Recovered/Resolved]
  - Pyrexia [Recovered/Resolved]
  - Infusion related reaction [Recovered/Resolved]
  - Inappropriate schedule of product administration [Recovered/Resolved]
  - Dizziness [Recovered/Resolved]
  - Blood glucose increased [Recovered/Resolved]
  - Relapsing fever [Recovered/Resolved]
